FAERS Safety Report 8609286-0 (Version None)
Quarter: 2012Q3

REPORT INFORMATION
  Report Type: 
  Country: None (occurrence: None)
  Receive Date: 20120821
  Receipt Date: 20120814
  Transmission Date: 20120928
  Serious: Yes (Other)
  Sender: FDA-Public Use
  Company Number: PHEH2012US014391

PATIENT
  Sex: Female
  Weight: 138 kg

DRUGS (11)
  1. NEXIUM [Concomitant]
  2. NUVIGIL [Concomitant]
  3. ADVIL [Concomitant]
     Indication: PAIN
     Dosage: UNK UKN, PRN
  4. ENABLEX [Concomitant]
  5. SOMA [Concomitant]
  6. DANTRIUM [Concomitant]
  7. LEVAQUIN [Concomitant]
  8. GILENYA [Suspect]
     Indication: RELAPSING-REMITTING MULTIPLE SCLEROSIS
     Dosage: 0.5 MG, QD
     Route: 048
     Dates: start: 20120710
  9. MOBIC [Concomitant]
  10. MACROBID [Concomitant]
  11. ARMODAFINIL [Concomitant]

REACTIONS (6)
  - PAIN [None]
  - NAUSEA [None]
  - DIARRHOEA [None]
  - DEPRESSION [None]
  - MOOD SWINGS [None]
  - HEADACHE [None]
